FAERS Safety Report 8166845-X (Version None)
Quarter: 2012Q1

REPORT INFORMATION
  Report Type: 
  Country: None (occurrence: None)
  Receive Date: 20120227
  Receipt Date: 20120216
  Transmission Date: 20120608
  Serious: Yes (Other)
  Sender: FDA-Public Use
  Company Number: US-BAYER-2011-034972

PATIENT
  Age: 29 Year
  Sex: Female
  Weight: 92.971 kg

DRUGS (6)
  1. IBUPROFEN [Concomitant]
     Dosage: UNK UNK, PRN
     Route: 048
     Dates: start: 19950101
  2. MONONESSA-28 [Concomitant]
  3. YAZ [Suspect]
     Indication: PREMENSTRUAL SYNDROME
  4. ASCORBIC ACID [Concomitant]
     Dosage: UNK
     Route: 048
  5. YAZ [Suspect]
     Indication: CONTRACEPTION
     Dosage: UNK
     Route: 048
     Dates: start: 20090101, end: 20091101
  6. ALBUTEROL INHALER [Concomitant]
     Dosage: UNK
     Route: 048
     Dates: start: 19950101

REACTIONS (6)
  - GENERAL PHYSICAL HEALTH DETERIORATION [None]
  - ANHEDONIA [None]
  - ANXIETY [None]
  - EMOTIONAL DISTRESS [None]
  - PAIN [None]
  - DEEP VEIN THROMBOSIS [None]
